FAERS Safety Report 25200694 (Version 1)
Quarter: 2025Q2

REPORT INFORMATION
  Report Type: Spontaneous
  Country: ZA (occurrence: ZA)
  Receive Date: 20250415
  Receipt Date: 20250415
  Transmission Date: 20250717
  Serious: Yes (Hospitalization, Other)
  Sender: BAYER
  Company Number: ZA-BAYER-2025A050373

PATIENT
  Age: 52 Year
  Sex: Female

DRUGS (3)
  1. ANGELIQ [Suspect]
     Active Substance: DROSPIRENONE\ESTRADIOL
     Dosage: 1 DF, QD
     Route: 048
  2. Benylin four flu [Concomitant]
     Dosage: 20 ML, QID
     Route: 048
  3. Ponac [Concomitant]
     Dosage: 5 ML, TID
     Route: 048

REACTIONS (2)
  - Knee arthroplasty [None]
  - Malaise [None]

NARRATIVE: CASE EVENT DATE: 20250404
